FAERS Safety Report 6768226-X (Version None)
Quarter: 2010Q2

REPORT INFORMATION
  Report Type: 
  Country: None (occurrence: None)
  Receive Date: 20100614
  Receipt Date: 20100605
  Transmission Date: 20101027
  Serious: Yes (Other)
  Sender: FDA-Public Use
  Company Number: FR-PFIZER INC-2010070715

PATIENT
  Age: 56 Year
  Sex: Female

DRUGS (6)
  1. AROMASIN [Suspect]
     Dosage: 25 MG, 1X/DAY
  2. GLUCOPHAGE [Concomitant]
     Dosage: UNK
  3. DI-ANTALVIC [Concomitant]
     Dosage: UNK
  4. NOVOMIX [Concomitant]
     Dosage: UNK
  5. LYSANXIA [Concomitant]
     Dosage: UNK
  6. TAHOR [Concomitant]
     Dosage: UNK

REACTIONS (2)
  - BLOOD PRESSURE DECREASED [None]
  - CHEST PAIN [None]
